FAERS Safety Report 9212902 (Version 2)
Quarter: 2013Q2

REPORT INFORMATION
  Report Type: Spontaneous
  Country: RU (occurrence: RU)
  Receive Date: 20130405
  Receipt Date: 20130515
  Transmission Date: 20140414
  Serious: Yes (Hospitalization, Other)
  Sender: FDA-Public Use
  Company Number: RU-JNJFOC-20130317280

PATIENT
  Age: 28 Year
  Sex: Female

DRUGS (3)
  1. REMICADE [Suspect]
     Indication: RHEUMATOID ARTHRITIS
     Route: 042
     Dates: start: 201205
  2. ARAVA [Concomitant]
     Indication: RHEUMATOID ARTHRITIS
     Route: 065
     Dates: start: 201109
  3. SUPRASTIN [Concomitant]
     Indication: PREMEDICATION
     Dosage: 2,0 INTRAMUSCULAR
     Route: 030

REACTIONS (2)
  - Peritonsillar abscess [Unknown]
  - Pneumonia [Unknown]
